FAERS Safety Report 5875329-0 (Version None)
Quarter: 2008Q3

REPORT INFORMATION
  Report Type: 
  Country: None (occurrence: None)
  Receive Date: 20080904
  Receipt Date: 20080822
  Transmission Date: 20090109
  Serious: No
  Sender: FDA-Public Use
  Company Number: US024442

PATIENT
  Sex: Male

DRUGS (2)
  1. FENTORA [Suspect]
     Indication: BACK PAIN
     Dosage: BUCCAL
     Route: 002
  2. METHADONE HCL [Concomitant]

REACTIONS (1)
  - CIRCUMSTANCE OR INFORMATION CAPABLE OF LEADING TO MEDICATION ERROR [None]
